FAERS Safety Report 16318484 (Version 1)
Quarter: 2019Q2

REPORT INFORMATION
  Report Type: Spontaneous
  Country: US (occurrence: US)
  Receive Date: 20190409
  Receipt Date: 20190409
  Transmission Date: 20190711
  Serious: Yes (Other)
  Sender: FDA-Public Use
  Company Number: None

PATIENT
  Age: 50 Year
  Sex: Female
  Weight: 79.38 kg

DRUGS (10)
  1. MEGACE [Concomitant]
     Active Substance: MEGESTROL ACETATE
  2. SEROQUEL [Concomitant]
     Active Substance: QUETIAPINE FUMARATE
  3. CLONAZEPAM 1MG DARK BLUE (NO SCORE) READS C/1 ON TABLET [Suspect]
     Active Substance: CLONAZEPAM
     Indication: ANXIETY
     Dosage: ?          QUANTITY:1-2 PILLS DAILY;OTHER FREQUENCY:2-4 TIMES DAILY;?
     Route: 048
     Dates: start: 20190323, end: 20190324
  4. LEVOTHYROXINE. [Concomitant]
     Active Substance: LEVOTHYROXINE
  5. METOPROLOL. [Concomitant]
     Active Substance: METOPROLOL
  6. CLONAZEPAM. [Concomitant]
     Active Substance: CLONAZEPAM
  7. HYDRALAZINE [Concomitant]
     Active Substance: HYDRALAZINE HYDROCHLORIDE
  8. MULTI VIT [Concomitant]
     Active Substance: VITAMINS
  9. TRISPRINTEC [Concomitant]
     Active Substance: ETHINYL ESTRADIOL\NORGESTIMATE
  10. B-12 SHOTS [Concomitant]

REACTIONS (1)
  - Reaction to colouring [None]

NARRATIVE: CASE EVENT DATE: 20190324
